FAERS Safety Report 9718466 (Version 1)
Quarter: 2013Q4

REPORT INFORMATION
  Report Type: Not Available
  Country: US (occurrence: US)
  Receive Date: 20131125
  Receipt Date: 20131125
  Transmission Date: 20140711
  Serious: No
  Sender: FDA-Public Use
  Company Number: US-VIVUS-2013V1000558

PATIENT
  Age: 46 Year
  Sex: Female
  Weight: 110.78 kg

DRUGS (5)
  1. QSYMIA 11.25MG/69MG [Suspect]
     Indication: WEIGHT DECREASED
     Route: 048
     Dates: start: 20130712, end: 20130717
  2. QSYMIA 15MG/92MG [Suspect]
     Indication: WEIGHT DECREASED
     Route: 048
     Dates: start: 20130718
  3. DIOVAN HCT [Concomitant]
     Indication: HYPERTENSION
     Dosage: 160/12.5 MG, STARTED OVER A YEAR AGO
     Route: 048
  4. SYNTHROID [Concomitant]
     Indication: HYPOTHYROIDISM
     Dosage: STARTED 20 YEARS AGO
     Route: 048
     Dates: start: 1993
  5. PRILOSEC [Concomitant]
     Indication: PRODUCT USED FOR UNKNOWN INDICATION
     Dosage: STARTED ONE MONTH AGO
     Route: 048
     Dates: start: 201306

REACTIONS (5)
  - Oropharyngeal pain [Not Recovered/Not Resolved]
  - Dry mouth [Not Recovered/Not Resolved]
  - Headache [Unknown]
  - Hypoaesthesia [Not Recovered/Not Resolved]
  - Constipation [Not Recovered/Not Resolved]
